FAERS Safety Report 10512529 (Version 1)
Quarter: 2014Q4

REPORT INFORMATION
  Report Type: Spontaneous
  Country: US (occurrence: US)
  Receive Date: 20141011
  Receipt Date: 20141011
  Transmission Date: 20150528
  Serious: No
  Sender: FDA-Public Use
  Company Number: US-009507513-1410USA001467

PATIENT
  Age: 34 Year
  Sex: Female
  Weight: 62.13 kg

DRUGS (3)
  1. IMPLANON [Suspect]
     Active Substance: ETONOGESTREL
     Indication: CONTRACEPTION
     Dosage: 1 ROD/3 YEARS, INSERTED IN LEFT ARM
     Route: 059
     Dates: start: 20111228
  2. TERBINAFINE [Concomitant]
     Active Substance: TERBINAFINE
     Dosage: 250 MG/ ONCE A DAY
  3. LAMISIL [Concomitant]
     Active Substance: TERBINAFINE HYDROCHLORIDE
     Dosage: UNK

REACTIONS (3)
  - Fungal skin infection [Unknown]
  - Amenorrhoea [Recovered/Resolved]
  - Menorrhagia [Not Recovered/Not Resolved]

NARRATIVE: CASE EVENT DATE: 201112
